FAERS Safety Report 10213585 (Version 3)
Quarter: 2014Q3

REPORT INFORMATION
  Report Type: Spontaneous
  Country: US (occurrence: None)
  Receive Date: 20140530
  Receipt Date: 20140902
  Transmission Date: 20150326
  Serious: Yes (Hospitalization)
  Sender: FDA-Public Use
  Company Number: UNT-2014-000679

PATIENT
  Age: 47 Year
  Sex: Female
  Weight: 76.6 kg

DRUGS (2)
  1. SILDENAFIL (SILDENAFIL) [Concomitant]
     Active Substance: SILDENAFIL
  2. TYVASO [Suspect]
     Active Substance: TREPROSTINIL
     Indication: COR PULMONALE CHRONIC
     Route: 055
     Dates: start: 201401

REACTIONS (4)
  - Gastroenteritis viral [None]
  - Hypertension [None]
  - Lactic acidosis [None]
  - Asthenia [None]

NARRATIVE: CASE EVENT DATE: 20140513
